FAERS Safety Report 7780775-4 (Version None)
Quarter: 2011Q3

REPORT INFORMATION
  Report Type: 
  Country: None (occurrence: None)
  Receive Date: 20110927
  Receipt Date: 20110922
  Transmission Date: 20111222
  Serious: No
  Sender: FDA-Public Use
  Company Number: US-PFIZER INC-2011225984

PATIENT
  Sex: Female
  Weight: 59.9 kg

DRUGS (2)
  1. LAMOTRIGINE [Concomitant]
     Indication: MOOD ALTERED
     Dosage: 100 MG, UNK
  2. PRISTIQ [Suspect]
     Indication: DEPRESSION
     Dosage: 50 MG, 1X/DAY
     Route: 048
     Dates: start: 20110101

REACTIONS (8)
  - ANXIETY [None]
  - BALANCE DISORDER [None]
  - FATIGUE [None]
  - DRUG INEFFECTIVE [None]
  - MIGRAINE [None]
  - INSOMNIA [None]
  - DIZZINESS [None]
  - MEDICATION RESIDUE [None]
